FAERS Safety Report 15745741 (Version 3)
Quarter: 2020Q1

REPORT INFORMATION
  Report Type: Report from Study
  Country: US (occurrence: US)
  Receive Date: 20181220
  Receipt Date: 20200103
  Transmission Date: 20200409
  Serious: Yes (Hospitalization)
  Sender: FDA-Public Use
  Company Number: PHHO2018US010564

PATIENT
  Age: 58 Year
  Sex: Male
  Weight: 87 kg

DRUGS (41)
  1. METOPROLOL. [Concomitant]
     Active Substance: METOPROLOL
     Indication: HYPERTENSION
     Dosage: 50 MG, QD
     Route: 048
     Dates: start: 2013
  2. FERROUS SULFATE. [Concomitant]
     Active Substance: FERROUS SULFATE
     Indication: SUPPLEMENTATION THERAPY
     Dosage: 325 MG, BID
     Route: 048
     Dates: start: 201807
  3. HUMALOG [Concomitant]
     Active Substance: INSULIN LISPRO
     Indication: ENDOCRINE DISORDER
     Dosage: 0-6 UNITS TID
     Route: 058
     Dates: start: 20180922
  4. BENADRYL [Concomitant]
     Active Substance: DIPHENHYDRAMINE HYDROCHLORIDE
     Indication: RASH MACULO-PAPULAR
     Dosage: 25 MG, ONCE/SINGLE
     Route: 048
     Dates: start: 20180922, end: 20180922
  5. CEFAZOLIN [Concomitant]
     Active Substance: CEFAZOLIN
     Indication: SKIN INFECTION
     Dosage: 2 G, TID
     Route: 042
     Dates: start: 20180922
  6. TRAMADOL. [Concomitant]
     Active Substance: TRAMADOL
     Indication: PRODUCT USED FOR UNKNOWN INDICATION
     Route: 065
  7. LUVOX [Concomitant]
     Active Substance: FLUVOXAMINE MALEATE
     Indication: PRODUCT USED FOR UNKNOWN INDICATION
     Route: 065
  8. ASPIRIN. [Concomitant]
     Active Substance: ASPIRIN
     Indication: PROPHYLAXIS
     Dosage: 81 MG, QD
     Route: 048
     Dates: start: 2013
  9. FLUVOXAMINE [Concomitant]
     Active Substance: FLUVOXAMINE
     Indication: SCHIZOAFFECTIVE DISORDER
     Dosage: 200 MG, 100 MG
     Route: 048
     Dates: start: 1998
  10. RANITIDINE. [Concomitant]
     Active Substance: RANITIDINE
     Indication: RHINITIS ALLERGIC
     Dosage: 150 MG, BID
     Route: 048
     Dates: start: 201807
  11. FLUTICASONE. [Concomitant]
     Active Substance: FLUTICASONE
     Indication: RESPIRATORY DISORDER
     Dosage: 1 PUF BID UNK
     Route: 042
     Dates: start: 20180922, end: 20181022
  12. MAGNESIUM SULPHATE [Concomitant]
     Active Substance: MAGNESIUM SULFATE
     Indication: HYPERMAGNESAEMIA
     Dosage: 1 G, ONCE/SINGLE
     Route: 042
     Dates: start: 20180924, end: 20180924
  13. POTASSIUM CHLORIDE. [Concomitant]
     Active Substance: POTASSIUM CHLORIDE
     Indication: HYPOKALAEMIA
     Dosage: 10 MG, ONCE/SINGLE
     Route: 042
     Dates: start: 20180924
  14. LIPITOR [Concomitant]
     Active Substance: ATORVASTATIN CALCIUM
     Indication: PRODUCT USED FOR UNKNOWN INDICATION
     Dosage: 20 MG, QD
     Route: 048
     Dates: start: 2013
  15. DAILY MULTIVITAMIN [Concomitant]
     Active Substance: VITAMINS
     Indication: SUPPLEMENTATION THERAPY
     Dosage: 1 DF, QD
     Route: 048
     Dates: start: 201807
  16. CLINDAMYCIN. [Concomitant]
     Active Substance: CLINDAMYCIN
     Indication: SEPSIS
     Dosage: Q8H
     Route: 042
     Dates: start: 20180922, end: 20180922
  17. SODIUM CHLORIDE. [Concomitant]
     Active Substance: SODIUM CHLORIDE
     Indication: BLOOD CREATININE INCREASED
     Dosage: 2898 ML, ONCE/SINGLE
     Route: 042
     Dates: start: 20180921, end: 20180921
  18. HUMALOG [Concomitant]
     Active Substance: INSULIN LISPRO
     Dosage: 0-13 UNITS TID
     Route: 058
     Dates: start: 20180922
  19. NYSTATIN. [Concomitant]
     Active Substance: NYSTATIN
     Indication: SKIN INFECTION
     Dosage: 100000 UNITS/GRAVE BID UNK
     Route: 061
     Dates: start: 20180922
  20. GSK1120212 [Suspect]
     Active Substance: TRAMETINIB
     Indication: MALIGNANT MELANOMA
     Dosage: UNK
     Route: 048
     Dates: start: 20180907, end: 20180907
  21. TRAMETINIB [Suspect]
     Active Substance: TRAMETINIB
     Indication: MALIGNANT MELANOMA
     Dosage: 1.554 MG, Q3W
     Route: 042
  22. MELATONIN [Concomitant]
     Active Substance: MELATONIN
     Indication: PRODUCT USED FOR UNKNOWN INDICATION
     Route: 065
  23. KLONOPIN [Concomitant]
     Active Substance: CLONAZEPAM
     Indication: ANXIETY
     Dosage: 0.5 MG, BID
     Route: 048
  24. CLINDAMYCIN. [Concomitant]
     Active Substance: CLINDAMYCIN
     Indication: SOFT TISSUE INFECTION
     Dosage: 600 MG, ONCE/SINGLE
     Route: 042
     Dates: start: 20180921, end: 20180921
  25. SODIUM CHLORIDE. [Concomitant]
     Active Substance: SODIUM CHLORIDE
     Indication: DEHYDRATION
     Dosage: 75 CC/H CONT
     Route: 042
     Dates: start: 20180922
  26. AMLODIPINE [Concomitant]
     Active Substance: AMLODIPINE BESYLATE
     Indication: HYPERTENSION
     Dosage: 5 MG, QD
     Route: 048
     Dates: start: 2013
  27. IMODIUM [Concomitant]
     Active Substance: LOPERAMIDE HYDROCHLORIDE
     Indication: DIARRHOEA
     Dosage: 2 MG, PRN
     Route: 048
     Dates: start: 20180809
  28. LOMOTIL [Concomitant]
     Active Substance: ATROPINE SULFATE\DIPHENOXYLATE HYDROCHLORIDE
     Indication: DIARRHOEA
     Dosage: 1 DF, PRN
     Route: 048
  29. METFORMIN [Concomitant]
     Active Substance: METFORMIN HYDROCHLORIDE
     Indication: TYPE 2 DIABETES MELLITUS
     Dosage: 500 MG, BID
     Route: 048
     Dates: start: 2015
  30. ZYPREXA [Concomitant]
     Active Substance: OLANZAPINE
     Indication: PRODUCT USED FOR UNKNOWN INDICATION
     Route: 065
  31. VITAMIN D [Concomitant]
     Active Substance: VITAMIN D NOS
     Indication: SUPPLEMENTATION THERAPY
     Dosage: 1 DF, QW
     Route: 048
     Dates: start: 201807
  32. HUMALOG [Concomitant]
     Active Substance: INSULIN LISPRO
     Dosage: 0-6 UNITS QHS
     Route: 058
     Dates: start: 20180922
  33. ZIPRASIDONE. [Concomitant]
     Active Substance: ZIPRASIDONE
     Indication: SCHIZOAFFECTIVE DISORDER
     Dosage: 80 MG, NIGHTLY
     Route: 048
     Dates: start: 2008
  34. ZIPRASIDONE. [Concomitant]
     Active Substance: ZIPRASIDONE
     Dosage: 80 MG, BID
     Dates: start: 20180922
  35. OLANZAPINE. [Concomitant]
     Active Substance: OLANZAPINE
     Indication: SCHIZOAFFECTIVE DISORDER
     Dosage: 20 MG, NIGHTLY
     Route: 048
     Dates: start: 2008
  36. JANUVIA [Concomitant]
     Active Substance: SITAGLIPTIN PHOSPHATE
     Indication: TYPE 2 DIABETES MELLITUS
     Dosage: 100 MG, QD
     Route: 048
     Dates: start: 201807
  37. PREDNISONE. [Concomitant]
     Active Substance: PREDNISONE
     Indication: DIARRHOEA
     Dosage: 10 MG, ONCE/SINGLE
     Route: 048
  38. KLONOPIN [Concomitant]
     Active Substance: CLONAZEPAM
     Dosage: 0.5 MG
     Route: 048
     Dates: start: 20180922
  39. HYDROCORTISONE. [Concomitant]
     Active Substance: HYDROCORTISONE
     Indication: RASH MACULO-PAPULAR
     Dosage: 1 APP BID UNK
     Route: 061
     Dates: start: 20180922
  40. VANCOMYCIN [Concomitant]
     Active Substance: VANCOMYCIN
     Indication: SOFT TISSUE INFECTION
     Dosage: 1500 MG, BID
     Route: 042
     Dates: start: 20180922, end: 20180922
  41. MUPIROCIN. [Concomitant]
     Active Substance: MUPIROCIN
     Indication: SOFT TISSUE INFECTION
     Dosage: 1 APP BID
     Route: 061
     Dates: start: 20180922

REACTIONS (1)
  - Muscular weakness [Recovered/Resolved]

NARRATIVE: CASE EVENT DATE: 20180918
